FAERS Safety Report 8967606 (Version 1)
Quarter: 2012Q4

REPORT INFORMATION
  Report Type: 
  Country: US (occurrence: US)
  Receive Date: 20121214
  Receipt Date: 20121214
  Transmission Date: 20130627
  Serious: Yes (Death)
  Sender: FDA-Public Use
  Company Number: US-PFIZER INC-2012310403

PATIENT
  Age: 63 Year
  Sex: Male

DRUGS (1)
  1. SULFASALAZINE [Suspect]
     Indication: ULCERATIVE COLITIS
     Dosage: 2 g,  daily

REACTIONS (1)
  - Toxic epidermal necrolysis [Fatal]
